FAERS Safety Report 9384808 (Version 2)
Quarter: 2013Q3

REPORT INFORMATION
  Report Type: Spontaneous
  Country: CN (occurrence: CN)
  Receive Date: 20130705
  Receipt Date: 20130730
  Transmission Date: 20140515
  Serious: Yes (Other)
  Sender: FDA-Public Use
  Company Number: CN-PFIZER INC-2013198986

PATIENT
  Age: 62 Year
  Sex: Male

DRUGS (2)
  1. PANTOPRAZOLE [Suspect]
     Indication: DUODENAL ULCER
     Dosage: 40 MG, DAILY
     Route: 048
  2. COLLOIDAL BISMUTH PECTIN [Concomitant]
     Dosage: 0.1 G, DAILY
     Route: 048

REACTIONS (1)
  - Dermatitis allergic [Recovered/Resolved]
